FAERS Safety Report 17523673 (Version 2)
Quarter: 2020Q1

REPORT INFORMATION
  Report Type: Spontaneous
  Country: US (occurrence: US)
  Receive Date: 20200311
  Receipt Date: 20200313
  Transmission Date: 20200409
  Serious: No
  Sender: FDA-Public Use
  Company Number: US-TEVA-2020-US-1194943

PATIENT
  Age: 57 Year
  Sex: Female

DRUGS (1)
  1. IVERMECTIN. [Suspect]
     Active Substance: IVERMECTIN
     Indication: NEURODERMATITIS
     Dosage: 4 TUBES EVERY THREE WEEKS
     Route: 065

REACTIONS (1)
  - Off label use [Unknown]
